FAERS Safety Report 15681629 (Version 1)
Quarter: 2018Q4

REPORT INFORMATION
  Report Type: Other
  Country: US (occurrence: IR)
  Receive Date: 20181203
  Receipt Date: 20181203
  Transmission Date: 20190205
  Serious: Yes (Other)
  Sender: FDA-Public Use
  Company Number: IR-BRECKENRIDGE PHARMACEUTICAL, INC.-2059559

PATIENT
  Age: 21 Year
  Sex: Female

DRUGS (1)
  1. MEFENAMIC ACID. [Suspect]
     Active Substance: MEFENAMIC ACID
     Indication: MENORRHAGIA

REACTIONS (1)
  - Deep vein thrombosis postoperative [Recovered/Resolved]
